FAERS Safety Report 4960385-4 (Version None)
Quarter: 2006Q2

REPORT INFORMATION
  Report Type: 
  Country: None (occurrence: None)
  Receive Date: 20060403
  Receipt Date: 20060324
  Transmission Date: 20061013
  Serious: Yes (Hospitalization)
  Sender: FDA-Public Use
  Company Number: PHBS2006FR04405

PATIENT
  Age: 5 Day
  Sex: Female

DRUGS (2)
  1. FORADIL [Suspect]
  2. AERIUS [Suspect]
     Indication: ASTHMA
     Dosage: 5 MG, QD

REACTIONS (3)
  - DRUG EXPOSURE VIA BREAST MILK [None]
  - FEEDING DISORDER NEONATAL [None]
  - HYPOTONIA [None]
